FAERS Safety Report 7663818-8 (Version None)
Quarter: 2011Q3

REPORT INFORMATION
  Report Type: 
  Country: None (occurrence: None)
  Receive Date: 20110805
  Receipt Date: 20100817
  Transmission Date: 20111222
  Serious: No
  Sender: FDA-Public Use
  Company Number: US-ABBOTT-10P-163-0664923-00

PATIENT
  Sex: Female
  Weight: 92.162 kg

DRUGS (14)
  1. BONIVA [Concomitant]
     Indication: OSTEOPOROSIS
  2. LORATADINE [Concomitant]
     Indication: SINUS DISORDER
  3. NIASPAN [Suspect]
     Indication: BLOOD CHOLESTEROL
  4. ASPIRIN [Suspect]
     Indication: PRODUCT USED FOR UNKNOWN INDICATION
  5. AMLODIPINE BESYLATE [Concomitant]
     Indication: CARDIAC DISORDER
  6. RED YEAST RICE [Concomitant]
     Indication: PRODUCT USED FOR UNKNOWN INDICATION
  7. M.V.I. [Concomitant]
     Indication: PRODUCT USED FOR UNKNOWN INDICATION
  8. ASPIRIN [Suspect]
  9. HYDROCODONE [Concomitant]
     Indication: PRODUCT USED FOR UNKNOWN INDICATION
  10. MELOXICAM [Concomitant]
     Indication: ARTHRITIS
  11. METOPROLOL TARTRATE [Concomitant]
     Indication: PRODUCT USED FOR UNKNOWN INDICATION
  12. LORAZEPAM [Concomitant]
     Indication: PRODUCT USED FOR UNKNOWN INDICATION
  13. VIT B12 [Concomitant]
     Indication: PRODUCT USED FOR UNKNOWN INDICATION
  14. PLAVIX [Concomitant]
     Indication: STENT PLACEMENT

REACTIONS (2)
  - FLUSHING [None]
  - RASH MACULAR [None]
